FAERS Safety Report 5593491-4 (Version None)
Quarter: 2008Q1

REPORT INFORMATION
  Report Type: 
  Country: None (occurrence: None)
  Receive Date: 20080116
  Receipt Date: 20080109
  Transmission Date: 20080703
  Serious: Yes (Other)
  Sender: FDA-Public Use
  Company Number: FR-BRISTOL-MYERS SQUIBB COMPANY-14037774

PATIENT
  Age: 50 Year
  Sex: Female

DRUGS (2)
  1. REYATAZ [Suspect]
     Route: 048
  2. ENTECAVIR [Suspect]
     Route: 048

REACTIONS (1)
  - NEPHROLITHIASIS [None]
